FAERS Safety Report 7494727-5 (Version None)
Quarter: 2011Q2

REPORT INFORMATION
  Report Type: 
  Country: None (occurrence: None)
  Receive Date: 20110520
  Receipt Date: 20110513
  Transmission Date: 20111010
  Serious: Yes (Hospitalization)
  Sender: FDA-Public Use
  Company Number: US-GENZYME-CAMP-1001066

PATIENT
  Sex: Female
  Weight: 59.27 kg

DRUGS (17)
  1. VITAMIN D [Concomitant]
     Indication: NUTRITIONAL SUPPORT
     Dosage: 4000 IU, QD
     Route: 048
     Dates: start: 20100101
  2. ZOFRAN [Concomitant]
     Indication: NAUSEA
     Dosage: 8 MG, PRN
     Dates: start: 20090812
  3. LEVOTHYROZINE SODIUM [Concomitant]
     Dosage: 162 MG, QD
     Route: 048
     Dates: start: 20100623
  4. MIRAPEX [Concomitant]
     Indication: RESTLESS LEGS SYNDROME
     Dosage: .25 MG, QD
     Route: 048
     Dates: start: 20090201
  5. CAMPATH [Suspect]
     Indication: MULTIPLE SCLEROSIS
     Dosage: 12 MG, QDX5
     Route: 042
     Dates: start: 20080512, end: 20080516
  6. CAMPATH [Suspect]
     Dosage: 12 MG, QDX3
     Route: 042
     Dates: start: 20090817, end: 20090819
  7. VALTREX [Concomitant]
     Indication: ORAL HERPES
     Dosage: 1000 MG, QD
     Route: 048
     Dates: start: 20091108
  8. AMBIEN [Concomitant]
     Indication: INSOMNIA
     Dosage: 10 MG, PRN
     Route: 048
     Dates: start: 20070101
  9. METHYLPREDNISOLONE [Concomitant]
     Dosage: 1.0 G, QDX3
     Route: 042
     Dates: start: 20090817, end: 20090819
  10. ZOLOFT [Concomitant]
     Indication: ANXIETY
  11. NORCO [Concomitant]
     Indication: HEADACHE
     Dosage: 5 MG, TID
     Route: 048
  12. ACIDOPHILUS [Concomitant]
     Indication: FUNGAL INFECTION
     Dosage: 20 MG, QD
     Route: 048
     Dates: start: 20080602
  13. NUVIGIL [Concomitant]
     Indication: FATIGUE
     Dosage: 150 MG, QD
     Route: 048
     Dates: start: 20091116
  14. METHYLPREDNISOLONE [Concomitant]
     Indication: MULTIPLE SCLEROSIS
     Dosage: 1.0 G, QDX3
     Route: 042
     Dates: start: 20080512, end: 20080514
  15. ZOLOFT [Concomitant]
     Indication: DEPRESSION
     Dosage: 200 MG, QD
     Route: 048
     Dates: start: 20030101
  16. LEVOTHYROZINE SODIUM [Concomitant]
     Indication: AUTOIMMUNE THYROIDITIS
     Dosage: 112 MCG, QD
     Route: 048
     Dates: start: 20100518, end: 20100621
  17. TRAMADOL HCL [Concomitant]
     Indication: HEADACHE
     Dosage: 100 MG, QD
     Route: 048
     Dates: start: 20090201

REACTIONS (1)
  - ENDOCRINE OPHTHALMOPATHY [None]
